FAERS Safety Report 14675536 (Version 4)
Quarter: 2018Q2

REPORT INFORMATION
  Report Type: Spontaneous
  Country: US (occurrence: US)
  Receive Date: 20180323
  Receipt Date: 20180413
  Transmission Date: 20180711
  Serious: Yes (Hospitalization, Other)
  Sender: FDA-Public Use
  Company Number: US-VIIV HEALTHCARE LIMITED-US2018049224

PATIENT
  Age: 51 Year
  Sex: Male

DRUGS (7)
  1. PROAIR HFA [Concomitant]
     Active Substance: ALBUTEROL SULFATE
  2. TIVICAY [Suspect]
     Active Substance: DOLUTEGRAVIR SODIUM
     Indication: HIV INFECTION
     Dosage: UNK UNK, BID
     Route: 048
     Dates: start: 201609
  3. ADVAIR HFA [Concomitant]
     Active Substance: FLUTICASONE PROPIONATE\SALMETEROL XINAFOATE
  4. ALBUTEROL NEBULIZER [Concomitant]
     Active Substance: ALBUTEROL
  5. FLUTICASONE NASAL SPRAY [Concomitant]
     Active Substance: FLUTICASONE
  6. SELZENTRY [Suspect]
     Active Substance: MARAVIROC
     Indication: HIV INFECTION
     Dosage: UNK UNK, BID
     Dates: start: 201603
  7. DAPSONE. [Concomitant]
     Active Substance: DAPSONE

REACTIONS (1)
  - Pneumonia [Recovered/Resolved]

NARRATIVE: CASE EVENT DATE: 20171224
